FAERS Safety Report 5874207-0 (Version None)
Quarter: 2008Q3

REPORT INFORMATION
  Report Type: 
  Country: None (occurrence: None)
  Receive Date: 20080908
  Receipt Date: 20080829
  Transmission Date: 20090109
  Serious: Yes (Hospitalization, Other)
  Sender: FDA-Public Use
  Company Number: JP-ABBOTT-08P-087-0474697-00

PATIENT
  Age: 80 Year
  Sex: Male

DRUGS (4)
  1. LEUPRORELIN [Suspect]
     Indication: PROSTATE CANCER
     Route: 058
     Dates: start: 20040801
  2. CHLORMADINONE ACETATE TAB [Suspect]
     Indication: PROSTATE CANCER
     Route: 048
     Dates: start: 20040801
  3. GLICLAZIDE [Concomitant]
     Indication: TYPE 2 DIABETES MELLITUS
     Dosage: 20MG GRADUALLY INCREASED TO 80MG
     Dates: start: 19920101
  4. INSULIN [Concomitant]
     Indication: TYPE 2 DIABETES MELLITUS
     Dosage: 32 UNITS GRADUALLY DECREASED TO 0 UNITS

REACTIONS (1)
  - DIABETES MELLITUS [None]
